FAERS Safety Report 16679536 (Version 1)
Quarter: 2019Q3

REPORT INFORMATION
  Report Type: Spontaneous
  Country: US (occurrence: US)
  Receive Date: 20190624
  Receipt Date: 20190624
  Transmission Date: 20191004
  Serious: Yes (Other)
  Sender: FDA-Public Use
  Company Number: None

PATIENT
  Age: 52 Year
  Sex: Male

DRUGS (2)
  1. ENTECAVIR ++ [Suspect]
     Active Substance: ENTECAVIR
     Indication: HEPATITIS VIRAL
     Dosage: ?          OTHER FREQUENCY:2 TIMES A WEEK ;?
  2. ENTECAVIR ++ [Suspect]
     Active Substance: ENTECAVIR
     Indication: HEPATITIS B
     Dosage: ?          OTHER FREQUENCY:2 TIMES A WEEK ;?

REACTIONS (1)
  - Pulmonary oedema [None]

NARRATIVE: CASE EVENT DATE: 20190616
